FAERS Safety Report 7076535-2 (Version None)
Quarter: 2010Q4

REPORT INFORMATION
  Report Type: 
  Country: None (occurrence: None)
  Receive Date: 20101101
  Receipt Date: 20101026
  Transmission Date: 20110411
  Serious: Yes (Other)
  Sender: FDA-Public Use
  Company Number: BE-PFIZER INC-2010135871

PATIENT
  Sex: Male

DRUGS (1)
  1. TOVIAZ [Suspect]
     Indication: BLADDER DISORDER
     Dosage: 4 MG, 1X/DAY
     Route: 048
     Dates: start: 20101020, end: 20101021

REACTIONS (5)
  - DRY MOUTH [None]
  - EYE PAIN [None]
  - INSOMNIA [None]
  - SWOLLEN TONGUE [None]
  - VISION BLURRED [None]
